FAERS Safety Report 8889318 (Version 3)
Quarter: 2013Q2

REPORT INFORMATION
  Report Type: Spontaneous
  Country: US (occurrence: US)
  Receive Date: 20121106
  Receipt Date: 20130626
  Transmission Date: 20140414
  Serious: Yes (Other)
  Sender: FDA-Public Use
  Company Number: US-ASTRAZENECA-2012SE82906

PATIENT
  Age: 65 Year
  Sex: Male
  Weight: 99.8 kg

DRUGS (8)
  1. CRESTOR [Suspect]
     Indication: BLOOD CHOLESTEROL ABNORMAL
     Route: 048
     Dates: start: 200505, end: 201306
  2. CRESTOR [Suspect]
     Indication: CORONARY ARTERY DISEASE
     Route: 048
     Dates: start: 200505, end: 201306
  3. CRESTOR [Suspect]
     Indication: BLOOD TRIGLYCERIDES INCREASED
     Route: 048
     Dates: start: 200505, end: 201306
  4. ATENOLOL [Suspect]
     Indication: HYPERTENSION
     Route: 048
     Dates: start: 200505
  5. METFORMIN/ GLYBURIDE [Concomitant]
     Indication: TYPE 2 DIABETES MELLITUS
  6. BABY ASPIRIN [Concomitant]
     Indication: CARDIAC DISORDER
  7. METFORMIN [Concomitant]
     Indication: DIABETES MELLITUS
     Dates: start: 20081105
  8. GLIPIZIDE [Concomitant]
     Indication: DIABETES MELLITUS
     Dates: start: 20081105

REACTIONS (3)
  - Colorectal cancer [Unknown]
  - Adverse event [Recovered/Resolved]
  - Intentional drug misuse [Not Recovered/Not Resolved]
